FAERS Safety Report 24631002 (Version 1)
Quarter: 2024Q4

REPORT INFORMATION
  Report Type: Spontaneous
  Country: GB (occurrence: GB)
  Receive Date: 20241118
  Receipt Date: 20241118
  Transmission Date: 20250115
  Serious: Yes (Other)
  Sender: PFIZER
  Company Number: GB-MHRA-TPP8821744C9980349YC1731400910781

PATIENT
  Age: 16 Year
  Sex: Female
  Weight: 51 kg

DRUGS (3)
  1. MEDROXYPROGESTERONE ACETATE [Suspect]
     Active Substance: MEDROXYPROGESTERONE ACETATE
     Indication: Ill-defined disorder
     Dosage: UNK
     Dates: start: 20240910
  2. DEPO-PROVERA [Concomitant]
     Active Substance: MEDROXYPROGESTERONE ACETATE
     Indication: Ill-defined disorder
     Dosage: EVERY 13 WEEKS
     Dates: start: 20240910
  3. SUMATRIPTAN [Concomitant]
     Active Substance: SUMATRIPTAN
     Indication: Ill-defined disorder
     Dosage: TAKE ONE AT THE START OF A HEADACHE. CAN TAKE A...
     Dates: start: 20220930

REACTIONS (5)
  - Face oedema [Unknown]
  - Lip swelling [Unknown]
  - Rash [Unknown]
  - Sneezing [Unknown]
  - Pharyngeal disorder [Unknown]

NARRATIVE: CASE EVENT DATE: 20241010
